FAERS Safety Report 24660553 (Version 2)
Quarter: 2024Q4

REPORT INFORMATION
  Report Type: Spontaneous
  Country: US (occurrence: US)
  Receive Date: 20241125
  Receipt Date: 20241125
  Transmission Date: 20250115
  Serious: Yes (Other)
  Sender: AMGEN
  Company Number: US-AMGEN-USASP2024227452

PATIENT
  Age: 3 Year
  Sex: Male

DRUGS (2)
  1. PREDNISONE [Suspect]
     Active Substance: PREDNISONE
     Indication: Proteinuria
     Dosage: UNK
     Route: 065
  2. TACROLIMUS [Concomitant]
     Active Substance: TACROLIMUS
     Indication: Proteinuria
     Dosage: UNK
     Route: 065

REACTIONS (4)
  - Myelodysplastic syndrome [Unknown]
  - Drug ineffective [Unknown]
  - Hypoalbuminaemia [Unknown]
  - Oedema [Not Recovered/Not Resolved]
